FAERS Safety Report 5369865-3 (Version None)
Quarter: 2007Q2

REPORT INFORMATION
  Report Type: 
  Country: None (occurrence: None)
  Receive Date: 20070621
  Receipt Date: 20070613
  Transmission Date: 20071010
  Serious: Yes (Life-Threatening)
  Sender: FDA-Public Use
  Company Number: 2007AL002412

PATIENT
  Age: 74 Year
  Sex: Male

DRUGS (9)
  1. DICLOFENAC SODIUM [Suspect]
     Indication: RHEUMATOID ARTHRITIS
     Dosage: 100 MG; QD; PO
     Route: 048
     Dates: end: 20070530
  2. PREDNISOLONE [Concomitant]
  3. OMERPAZOLE [Concomitant]
  4. AMLODIPINE [Concomitant]
  5. LISINOPRIL [Concomitant]
  6. ACETYLSALICYLIC ACID SRT [Concomitant]
  7. FUROSEMIDE [Concomitant]
  8. DOXAZOSIN MESYLATE [Concomitant]
  9. DIHYDROCODONE/ PARACETAMOL [Concomitant]

REACTIONS (3)
  - DUODENAL ULCER [None]
  - HAEMOGLOBIN DECREASED [None]
  - MELAENA [None]
